FAERS Safety Report 17527783 (Version 1)
Quarter: 2020Q1

REPORT INFORMATION
  Report Type: Spontaneous
  Country: US (occurrence: US)
  Receive Date: 20200311
  Receipt Date: 20200311
  Transmission Date: 20200409
  Serious: No
  Sender: FDA-Public Use
  Company Number: US-MISSION PHARMACAL COMPANY-2081511

PATIENT
  Age: 61 Year
  Sex: Female

DRUGS (1)
  1. LITHOSTAT [Suspect]
     Active Substance: ACETOHYDROXAMIC ACID
     Indication: CALCULUS BLADDER
     Route: 048
     Dates: start: 20200302

REACTIONS (2)
  - Headache [Not Recovered/Not Resolved]
  - Product use in unapproved indication [Not Recovered/Not Resolved]

NARRATIVE: CASE EVENT DATE: 20200302
